FAERS Safety Report 6215834-0 (Version None)
Quarter: 2009Q2

REPORT INFORMATION
  Report Type: 
  Country: None (occurrence: None)
  Receive Date: 20090605
  Receipt Date: 20070508
  Transmission Date: 20091009
  Serious: Yes (Other)
  Sender: FDA-Public Use
  Company Number: US-ASTRAZENECA-2006UW26135

PATIENT
  Age: 35 Year
  Sex: Male
  Weight: 90.7 kg

DRUGS (9)
  1. SEROQUEL [Suspect]
     Indication: SCHIZOPHRENIA
     Dosage: 200 MG - 300 MG
     Route: 048
     Dates: start: 19990101
  2. SEROQUEL [Suspect]
     Dosage: 100 - 300 MG DAILY
     Route: 048
     Dates: start: 20011105
  3. HALDOL [Concomitant]
     Dates: start: 19990101, end: 20010101
  4. RISPERDAL [Concomitant]
     Dates: start: 19990101, end: 20010101
  5. ZYPREXA [Concomitant]
     Dates: start: 19990101, end: 20010101
  6. DEPAKOTE [Concomitant]
     Route: 048
     Dates: start: 19990908
  7. ATIVAN [Concomitant]
     Route: 048
     Dates: start: 20030212
  8. VIAGRA [Concomitant]
     Dosage: 50 - 100 MG AS REQUIRED
     Route: 048
     Dates: start: 20040927
  9. ZOCOR [Concomitant]
     Dosage: 20 - 80 MG DAILY
     Route: 048
     Dates: start: 20040927

REACTIONS (4)
  - DIABETES MELLITUS [None]
  - DIABETIC NEUROPATHY [None]
  - INJURY [None]
  - TYPE 2 DIABETES MELLITUS [None]
